FAERS Safety Report 16983918 (Version 9)
Quarter: 2020Q1

REPORT INFORMATION
  Report Type: Report from Study
  Country: PL (occurrence: PL)
  Receive Date: 20191101
  Receipt Date: 20200214
  Transmission Date: 20200409
  Serious: Yes (Hospitalization)
  Sender: FDA-Public Use
  Company Number: PL-EISAI MEDICAL RESEARCH-EC-2019-064263

PATIENT
  Age: 62 Year
  Sex: Male
  Weight: 64 kg

DRUGS (19)
  1. KETONAL [Concomitant]
     Dates: start: 20190719
  2. DEXAVEN [Concomitant]
     Active Substance: DEXAMETHASONE
     Dates: start: 20191019, end: 20191019
  3. ASPULMO [Concomitant]
     Dates: start: 201801, end: 20191117
  4. PEMBROLIZUMAB. [Suspect]
     Active Substance: PEMBROLIZUMAB
     Indication: NON-SMALL CELL LUNG CANCER METASTATIC
     Route: 041
     Dates: start: 20190717, end: 20190919
  5. LENVATINIB [Suspect]
     Active Substance: LENVATINIB
     Indication: NON-SMALL CELL LUNG CANCER METASTATIC
     Route: 048
     Dates: start: 20190717
  6. BISOCARD [Concomitant]
     Active Substance: BISOPROLOL
     Dates: start: 201701, end: 20191117
  7. POTASSIUM CHLORIDE. [Concomitant]
     Active Substance: POTASSIUM CHLORIDE
     Dates: start: 20191010, end: 20191010
  8. FRESENIUS KABI OPTILYTE [Concomitant]
     Dates: start: 20191010, end: 20191010
  9. PULMOTEROL [Concomitant]
     Dates: start: 201701, end: 20191117
  10. LOPERAMID [Concomitant]
     Active Substance: LOPERAMIDE
     Dates: start: 20190919
  11. PEMBROLIZUMAB. [Suspect]
     Active Substance: PEMBROLIZUMAB
     Route: 041
     Dates: start: 20191010, end: 20191010
  12. OLFEN UNO [Concomitant]
     Active Substance: DICLOFENAC SODIUM
     Dates: start: 201801
  13. THEOSPIREX [Concomitant]
     Active Substance: THEOPHYLLINE ANHYDROUS
     Dates: start: 201701, end: 20191117
  14. SPIRIVA [Concomitant]
     Active Substance: TIOTROPIUM BROMIDE MONOHYDRATE
     Dates: start: 201801, end: 20191117
  15. ENAP-H [Concomitant]
     Dates: start: 201701, end: 20191117
  16. ENOXAPARIN SODIUM. [Concomitant]
     Active Substance: ENOXAPARIN SODIUM
     Dates: start: 20170703
  17. PRENOME [Concomitant]
     Active Substance: OMEPRAZOLE
     Dates: start: 20190719
  18. ACETAMINOPHEN. [Concomitant]
     Active Substance: ACETAMINOPHEN
     Dates: start: 20191019, end: 20191019
  19. DEXTROSE. [Concomitant]
     Active Substance: DEXTROSE
     Dates: start: 20191010, end: 20191010

REACTIONS (1)
  - Asthenia [Recovering/Resolving]

NARRATIVE: CASE EVENT DATE: 20191019
